FAERS Safety Report 14118904 (Version 1)
Quarter: 2017Q4

REPORT INFORMATION
  Report Type: Spontaneous
  Country: US (occurrence: US)
  Receive Date: 20171024
  Receipt Date: 20171024
  Transmission Date: 20180321
  Serious: Yes (Other)
  Sender: FDA-Public Use
  Company Number: US-AMGEN-USASP2017157991

PATIENT
  Sex: Female

DRUGS (1)
  1. CORLANOR [Suspect]
     Active Substance: IVABRADINE HYDROCHLORIDE
     Indication: POSTURAL ORTHOSTATIC TACHYCARDIA SYNDROME
     Dosage: UNK
     Route: 065
     Dates: start: 201709

REACTIONS (9)
  - Heart rate irregular [Unknown]
  - Mobility decreased [Unknown]
  - Adrenal insufficiency [Unknown]
  - Depression [Not Recovered/Not Resolved]
  - Heart rate increased [Unknown]
  - Feeling abnormal [Not Recovered/Not Resolved]
  - Urticaria [Unknown]
  - Off label use [Unknown]
  - Reaction to colouring [Unknown]

NARRATIVE: CASE EVENT DATE: 2017
